FAERS Safety Report 19021182 (Version 5)
Quarter: 2021Q2

REPORT INFORMATION
  Report Type: Report from Study
  Country: US (occurrence: US)
  Receive Date: 20210317
  Receipt Date: 20210630
  Transmission Date: 20210717
  Serious: Yes (Hospitalization, Other)
  Sender: FDA-Public Use
  Company Number: US-BAYER-2021-101706

PATIENT
  Age: 62 Year
  Sex: Female

DRUGS (3)
  1. STIVARGA [Suspect]
     Active Substance: REGORAFENIB
     Indication: COLORECTAL CANCER
     Dosage: 40 MG, QD
     Route: 048
     Dates: start: 20210304, end: 20210328
  2. STIVARGA [Suspect]
     Active Substance: REGORAFENIB
     Indication: COLORECTAL CANCER
     Dosage: DAILY DOSE 120 MG
     Route: 048
     Dates: start: 20210405
  3. STIVARGA [Suspect]
     Active Substance: REGORAFENIB
     Indication: COLORECTAL CANCER
     Dosage: 80 MG DAILY
     Route: 048
     Dates: start: 20210329, end: 20210404

REACTIONS (19)
  - Loss of personal independence in daily activities [None]
  - Constipation [Unknown]
  - Neuropathy peripheral [Not Recovered/Not Resolved]
  - Off label use [None]
  - Somnolence [Unknown]
  - Impaired work ability [Unknown]
  - Genital infection fungal [Not Recovered/Not Resolved]
  - Urinary tract infection [Unknown]
  - Adverse drug reaction [None]
  - Dry skin [Not Recovered/Not Resolved]
  - Dry mouth [Not Recovered/Not Resolved]
  - Rash [Not Recovered/Not Resolved]
  - Skin fissures [Not Recovered/Not Resolved]
  - Abdominal pain [Not Recovered/Not Resolved]
  - Tremor [Not Recovered/Not Resolved]
  - Headache [Recovered/Resolved]
  - Perineal pain [Unknown]
  - Product dose omission issue [Unknown]
  - Proctalgia [Not Recovered/Not Resolved]

NARRATIVE: CASE EVENT DATE: 202103
